FAERS Safety Report 6167177-1 (Version None)
Quarter: 2009Q2

REPORT INFORMATION
  Report Type: 
  Country: None (occurrence: None)
  Receive Date: 20090424
  Receipt Date: 20090413
  Transmission Date: 20091009
  Serious: Yes (Death, Other)
  Sender: FDA-Public Use
  Company Number: JP-PFIZER INC-2009180883

PATIENT

DRUGS (7)
  1. ZYVOX [Suspect]
     Dosage: 600 MG, 2X/DAY
     Dates: start: 20061017, end: 20061001
  2. VICCILLIN [Concomitant]
     Dates: start: 20061005, end: 20061005
  3. BROACT [Concomitant]
     Dates: start: 20061005, end: 20061005
  4. CEFAZOLIN [Concomitant]
     Dates: start: 20061005, end: 20061007
  5. GENTAMICIN SULFATE [Concomitant]
     Dates: start: 20061005, end: 20061007
  6. VANCOMYCIN [Concomitant]
     Dates: start: 20061007, end: 20061017
  7. MODACIN [Concomitant]
     Dates: start: 20061013

REACTIONS (2)
  - ENDOCARDITIS [None]
  - PLATELET COUNT DECREASED [None]
